FAERS Safety Report 5883339-2 (Version None)
Quarter: 2008Q3

REPORT INFORMATION
  Report Type: 
  Country: None (occurrence: None)
  Receive Date: 20080912
  Receipt Date: 20080912
  Transmission Date: 20090109
  Serious: Yes (Other)
  Sender: FDA-Public Use
  Company Number: None

PATIENT
  Age: 37 Year
  Sex: Female

DRUGS (6)
  1. BUPROPION HCL SR [Suspect]
     Indication: BIPOLAR DISORDER
     Dosage: 150MG QD PO
     Route: 048
     Dates: end: 20080801
  2. TOPAMAX [Concomitant]
  3. ADDERALL 10 [Concomitant]
  4. LI + [Concomitant]
  5. HYDROCHLOROTHIAZIDE [Concomitant]
  6. THYROID TAB [Concomitant]

REACTIONS (3)
  - DEPRESSION [None]
  - GRAND MAL CONVULSION [None]
  - PHARMACEUTICAL PRODUCT COMPLAINT [None]
